FAERS Safety Report 5844333-0 (Version None)
Quarter: 2008Q3

REPORT INFORMATION
  Report Type: 
  Country: None (occurrence: None)
  Receive Date: 20080813
  Receipt Date: 20080811
  Transmission Date: 20090109
  Serious: Yes (Hospitalization, Other)
  Sender: FDA-Public Use
  Company Number: US-BOEHRINGER INGELHEIM GMBH, GERMANY-2008-BP-09385BP

PATIENT
  Sex: Male

DRUGS (9)
  1. AGGRENOX [Suspect]
     Indication: CEREBROVASCULAR ACCIDENT PROPHYLAXIS
     Route: 048
     Dates: start: 20030601
  2. AGGRENOX [Suspect]
     Indication: CEREBROVASCULAR ACCIDENT
  3. LISINOPRIL [Concomitant]
     Indication: HYPERTENSION
  4. ASPIRIN [Concomitant]
     Indication: CARDIAC DISORDER
  5. COREG [Concomitant]
     Indication: CARDIAC DISORDER
  6. PRILOSEC [Concomitant]
     Indication: STOMACH DISCOMFORT
  7. CYMBALTA [Concomitant]
     Indication: PAIN
  8. PRAVACHOL [Concomitant]
     Indication: BLOOD CHOLESTEROL
  9. PLAVIX [Concomitant]
     Dates: start: 20070816

REACTIONS (2)
  - CEREBROVASCULAR ACCIDENT [None]
  - MYOCARDIAL INFARCTION [None]
